FAERS Safety Report 21442306 (Version 5)
Quarter: 2023Q2

REPORT INFORMATION
  Report Type: Report from Study
  Country: US (occurrence: US)
  Receive Date: 20221011
  Receipt Date: 20230615
  Transmission Date: 20230722
  Serious: Yes (Hospitalization, Other)
  Sender: FDA-Public Use
  Company Number: US-HORIZON THERAPEUTICS-HZN-2022-003138

PATIENT

DRUGS (5)
  1. TEPEZZA [Suspect]
     Active Substance: TEPROTUMUMAB-TRBW
     Indication: Endocrine ophthalmopathy
     Dosage: FIRST INFUSION
     Route: 042
     Dates: start: 20220301
  2. TEPEZZA [Suspect]
     Active Substance: TEPROTUMUMAB-TRBW
     Dosage: SECOND INFUSION
     Route: 042
     Dates: start: 20220701
  3. TEPEZZA [Suspect]
     Active Substance: TEPROTUMUMAB-TRBW
     Dosage: THIRD INFUSION
     Route: 042
     Dates: start: 20220722
  4. TEPEZZA [Suspect]
     Active Substance: TEPROTUMUMAB-TRBW
     Dosage: UNKNOWN INFUSION
     Route: 042
     Dates: start: 20230418
  5. UNSPECIFIED INGREDIENT [Concomitant]
     Active Substance: UNSPECIFIED INGREDIENT
     Indication: Endocrine ophthalmopathy
     Route: 042

REACTIONS (19)
  - Ear discomfort [Unknown]
  - Insomnia [Not Recovered/Not Resolved]
  - Lethargy [Unknown]
  - Limb discomfort [Unknown]
  - Dysphonia [Not Recovered/Not Resolved]
  - Oropharyngeal discomfort [Not Recovered/Not Resolved]
  - Fatigue [Not Recovered/Not Resolved]
  - Hypoacusis [Unknown]
  - Syncope [Unknown]
  - Full blood count decreased [Unknown]
  - Atrial fibrillation [Unknown]
  - Blood pressure decreased [Unknown]
  - Dizziness [Unknown]
  - Fall [Unknown]
  - Spinal column injury [Unknown]
  - Fluid retention [Unknown]
  - Mouth swelling [Unknown]
  - Tooth infection [Unknown]
  - Inappropriate schedule of product administration [Unknown]

NARRATIVE: CASE EVENT DATE: 20220101
